FAERS Safety Report 19846441 (Version 1)
Quarter: 2021Q3

REPORT INFORMATION
  Report Type: Spontaneous
  Country: US (occurrence: US)
  Receive Date: 20210917
  Receipt Date: 20210917
  Transmission Date: 20211014
  Serious: Yes (Hospitalization)
  Sender: FDA-Public Use
  Company Number: None

PATIENT
  Age: 56 Year
  Sex: Female
  Weight: 114 kg

DRUGS (3)
  1. DEXAMETHASONE. [Concomitant]
     Active Substance: DEXAMETHASONE
     Dates: start: 20210828, end: 20210906
  2. REMDESIVIR. [Concomitant]
     Active Substance: REMDESIVIR
     Dates: start: 20210829, end: 20210831
  3. TOCILIZUMAB. [Suspect]
     Active Substance: TOCILIZUMAB
     Indication: COVID-19
     Dosage: ?          OTHER FREQUENCY:ONCE;?
     Route: 042
     Dates: start: 20210828, end: 20210828

REACTIONS (15)
  - Acute kidney injury [None]
  - Nausea [None]
  - Tachycardia [None]
  - Leukocytosis [None]
  - Staphylococcus test positive [None]
  - Blood pressure decreased [None]
  - Discomfort [None]
  - Dyspnoea [None]
  - Agitation [None]
  - Bronchoalveolar lavage abnormal [None]
  - Staphylococcal infection [None]
  - COVID-19 pneumonia [None]
  - Vomiting [None]
  - Oxygen saturation decreased [None]
  - Sputum culture positive [None]

NARRATIVE: CASE EVENT DATE: 20210915
